FAERS Safety Report 20057155 (Version 1)
Quarter: 2021Q4

REPORT INFORMATION
  Report Type: Spontaneous
  Country: US (occurrence: US)
  Receive Date: 20211111
  Receipt Date: 20211111
  Transmission Date: 20220303
  Serious: No
  Sender: FDA-Public Use
  Company Number: US-ORGANON-O2111USA000348

PATIENT
  Age: 24 Year
  Sex: Female

DRUGS (1)
  1. ETHINYL ESTRADIOL\ETONOGESTREL [Suspect]
     Active Substance: ETHINYL ESTRADIOL\ETONOGESTREL
     Dosage: 1 RING, 0.12 MILLIGRAM/ 0.015 MILLIGRAM
     Route: 067
     Dates: start: 202108

REACTIONS (2)
  - Incorrect product administration duration [Unknown]
  - Incorrect product administration duration [Unknown]

NARRATIVE: CASE EVENT DATE: 20210801
